FAERS Safety Report 7328316-X (Version None)
Quarter: 2011Q1

REPORT INFORMATION
  Report Type: 
  Country: None (occurrence: None)
  Receive Date: 20110303
  Receipt Date: 20110217
  Transmission Date: 20110831
  Serious: Yes (Hospitalization)
  Sender: FDA-Public Use
  Company Number: GR-MYLANLABS-2011S1003535

PATIENT
  Age: 40 Year
  Sex: Female

DRUGS (2)
  1. CARBAMAZEPINE [Interacting]
     Indication: BIPOLAR DISORDER
     Route: 065
  2. FLUCONAZOLE [Suspect]
     Indication: FUNGAL INFECTION
     Route: 065

REACTIONS (7)
  - DRUG INTERACTION [None]
  - NAUSEA [None]
  - VOMITING [None]
  - SACCADIC EYE MOVEMENT [None]
  - DIZZINESS [None]
  - NYSTAGMUS [None]
  - DIPLOPIA [None]
